FAERS Safety Report 24557106 (Version 1)
Quarter: 2024Q4

REPORT INFORMATION
  Report Type: Spontaneous
  Country: KR (occurrence: KR)
  Receive Date: 20241028
  Receipt Date: 20241028
  Transmission Date: 20250114
  Serious: Yes (Hospitalization, Other)
  Sender: BAYER HEALTHCARE PHARMACEUTICALS INC.
  Company Number: KR-BAYER-2024A152897

PATIENT
  Age: 5 Year
  Sex: Male
  Weight: 21.3 kg

DRUGS (1)
  1. GADOBUTROL [Suspect]
     Active Substance: GADOBUTROL
     Dosage: UNK

REACTIONS (3)
  - Anaphylactic reaction [None]
  - Hypotension [None]
  - Pulmonary oedema [None]
